FAERS Safety Report 8429879-3 (Version None)
Quarter: 2012Q2

REPORT INFORMATION
  Report Type: 
  Country: None (occurrence: None)
  Receive Date: 20120612
  Receipt Date: 20120601
  Transmission Date: 20120825
  Serious: Yes (Other)
  Sender: FDA-Public Use
  Company Number: JP-ASTRAZENECA-2012SE36068

PATIENT
  Age: 91 Year
  Sex: Female

DRUGS (13)
  1. CALFINA [Concomitant]
     Route: 048
     Dates: end: 20120408
  2. AMLODIPINE [Concomitant]
     Route: 048
     Dates: end: 20120408
  3. ASPARA-CA [Concomitant]
     Route: 048
     Dates: end: 20120408
  4. MAGMITT [Concomitant]
     Route: 048
     Dates: end: 20120408
  5. AMAZOLON [Concomitant]
     Route: 048
     Dates: end: 20120408
  6. GLUCOSAMINE [Concomitant]
     Dates: end: 20120408
  7. SEROQUEL [Suspect]
     Route: 048
     Dates: start: 20120402, end: 20120406
  8. GOODMIN [Concomitant]
     Route: 048
     Dates: end: 20120408
  9. SELBEX [Concomitant]
     Route: 048
     Dates: end: 20120408
  10. TETRAMIDE [Concomitant]
     Route: 048
     Dates: end: 20120408
  11. LANSOPRAZOLE [Concomitant]
     Route: 048
     Dates: end: 20120408
  12. SULPIRIDE [Suspect]
     Route: 048
     Dates: start: 20120323, end: 20120330
  13. CYANOCOBALAMIN [Concomitant]
     Route: 048
     Dates: end: 20120408

REACTIONS (1)
  - HYPERNATRAEMIA [None]
